FAERS Safety Report 6327411-1 (Version None)
Quarter: 2009Q3

REPORT INFORMATION
  Report Type: 
  Country: None (occurrence: None)
  Receive Date: 20090818
  Receipt Date: 20090522
  Transmission Date: 20100115
  Serious: No
  Sender: FDA-Public Use
  Company Number: WAES 0905USA03399

PATIENT
  Age: 81 Year
  Sex: Female

DRUGS (6)
  1. JANUVIA [Suspect]
     Dosage: 100 MG/DAILY/PO
     Route: 048
     Dates: start: 20070901
  2. COZAAR [Concomitant]
  3. LOVAZA [Concomitant]
  4. XALATAN [Concomitant]
  5. GLIPIZIDE [Concomitant]
  6. METFORMIN HCL [Concomitant]

REACTIONS (2)
  - BLOOD GLUCOSE INCREASED [None]
  - MEDICATION RESIDUE [None]
